FAERS Safety Report 24392081 (Version 1)
Quarter: 2024Q4

REPORT INFORMATION
  Report Type: Spontaneous
  Country: US (occurrence: US)
  Receive Date: 20241003
  Receipt Date: 20241003
  Transmission Date: 20250115
  Serious: No
  Sender: BIOLINERX
  Company Number: US-MIMS-BIOLMC-574

PATIENT
  Age: 49 Year
  Sex: Female

DRUGS (7)
  1. APHEXDA [Suspect]
     Active Substance: MOTIXAFORTIDE ACETATE
     Indication: Product used for unknown indication
     Dosage: UNK
     Route: 058
     Dates: start: 20240718
  2. APHEXDA [Suspect]
     Active Substance: MOTIXAFORTIDE ACETATE
     Dosage: UNK
     Route: 058
     Dates: start: 20240722
  3. BENADRYL [Concomitant]
     Active Substance: DIPHENHYDRAMINE HYDROCHLORIDE
     Indication: Premedication
     Dosage: 12.5 UNK
     Route: 042
  4. H2 [Concomitant]
     Indication: Premedication
  5. MONTELUKAST [Concomitant]
     Active Substance: MONTELUKAST
     Indication: Premedication
  6. TYLENOL [Concomitant]
     Active Substance: ACETAMINOPHEN
     Indication: Premedication
  7. DEXAMETHASONE [Concomitant]
     Active Substance: DEXAMETHASONE
     Indication: Premedication
     Dosage: 4 MILLIGRAM
     Route: 042

REACTIONS (9)
  - Restless legs syndrome [Unknown]
  - Injection site pain [Unknown]
  - Injection site erythema [Unknown]
  - Injection site swelling [Unknown]
  - Injection site pruritus [Unknown]
  - Injection site paraesthesia [Unknown]
  - Flushing [Recovering/Resolving]
  - Urticaria [Unknown]
  - Injection site reaction [Recovering/Resolving]

NARRATIVE: CASE EVENT DATE: 20240718
